FAERS Safety Report 7314570-7 (Version None)
Quarter: 2011Q1

REPORT INFORMATION
  Report Type: 
  Country: None (occurrence: None)
  Receive Date: 20110225
  Receipt Date: 20101104
  Transmission Date: 20110831
  Serious: No
  Sender: FDA-Public Use
  Company Number: US-MYLANLABS-2010S1018437

PATIENT
  Age: 17 Year
  Sex: Female

DRUGS (3)
  1. AMNESTEEM [Suspect]
     Route: 048
     Dates: start: 20100511, end: 20100927
  2. PROTOPIC /01219902/ [Concomitant]
     Dosage: APPLY TO LIPS PRN X 3 MONTHS
     Route: 061
  3. AMNESTEEM [Suspect]
     Indication: ACNE
     Route: 048

REACTIONS (2)
  - ABDOMINAL PAIN [None]
  - NAUSEA [None]
